FAERS Safety Report 18453671 (Version 1)
Quarter: 2020Q4

REPORT INFORMATION
  Report Type: Spontaneous
  Country: US (occurrence: US)
  Receive Date: 20201102
  Receipt Date: 20201102
  Transmission Date: 20210114
  Serious: No
  Sender: FDA-Public Use
  Company Number: US-INCYTE CORPORATION-2020IN010608

PATIENT

DRUGS (1)
  1. JAKAFI [Suspect]
     Active Substance: RUXOLITINIB
     Indication: CROHN^S DISEASE
     Dosage: 5 MILLIGRAM, BID
     Route: 048
     Dates: start: 20161020

REACTIONS (2)
  - Off label use [Unknown]
  - Pain [Unknown]
